FAERS Safety Report 5741125-8 (Version None)
Quarter: 2008Q2

REPORT INFORMATION
  Report Type: 
  Country: None (occurrence: None)
  Receive Date: 20080516
  Receipt Date: 20080503
  Transmission Date: 20081010
  Serious: Yes (Hospitalization)
  Sender: FDA-Public Use
  Company Number: AR-GENENTECH-260865

PATIENT
  Age: 39 Year
  Sex: Female

DRUGS (2)
  1. AVASTIN [Suspect]
     Indication: BREAST CANCER
     Dosage: UNK, UNK
     Route: 042
     Dates: start: 20080101, end: 20080401
  2. TAXOL [Concomitant]
     Dates: start: 20080101, end: 20080401

REACTIONS (2)
  - CARDIAC FAILURE [None]
  - CARDIOMEGALY [None]
